FAERS Safety Report 7690475-7 (Version None)
Quarter: 2011Q3

REPORT INFORMATION
  Report Type: 
  Country: None (occurrence: None)
  Receive Date: 20110818
  Receipt Date: 20110811
  Transmission Date: 20111222
  Serious: Yes (Hospitalization, Other)
  Sender: FDA-Public Use
  Company Number: GB-PFIZER INC-2011185568

PATIENT
  Age: 62 Year
  Sex: Male

DRUGS (7)
  1. SUNITINIB MALATE [Suspect]
     Indication: METASTATIC RENAL CELL CARCINOMA
     Dosage: 50 MG, 1X/DAY
     Route: 048
     Dates: start: 20100802
  2. ASPIRIN [Concomitant]
     Route: 048
  3. BISOPROLOL [Concomitant]
     Route: 048
  4. PIOGLITAZONE [Concomitant]
     Route: 048
  5. CANDESARTAN [Concomitant]
     Route: 048
  6. GLICLAZIDE [Concomitant]
     Route: 048
  7. LANSOPRAZOLE [Concomitant]
     Route: 048

REACTIONS (1)
  - PRIAPISM [None]
